FAERS Safety Report 19614795 (Version 2)
Quarter: 2021Q3

REPORT INFORMATION
  Report Type: Spontaneous
  Country: AR (occurrence: AR)
  Receive Date: 20210727
  Receipt Date: 20210810
  Transmission Date: 20211014
  Serious: Yes (Hospitalization)
  Sender: FDA-Public Use
  Company Number: AR-PFIZER INC-2021880542

PATIENT
  Age: 62 Year
  Sex: Female

DRUGS (5)
  1. XELJANZ [Suspect]
     Active Substance: TOFACITINIB CITRATE
     Indication: RHEUMATOID ARTHRITIS
     Dosage: 5 MG, 2X/DAY
     Dates: start: 20160528
  2. LEFLUNOMIDA [Concomitant]
     Active Substance: LEFLUNOMIDE
     Dosage: UNK
  3. ASTRAZENECA COVID?19 VACCINE [Concomitant]
     Active Substance: AZD-1222
     Indication: COVID-19 IMMUNISATION
     Dosage: UNK
     Dates: start: 20210426
  4. METILPRES [Concomitant]
     Active Substance: PREDNISONE
     Dosage: UNK
  5. ALPERTAN D [Concomitant]
     Dosage: UNK

REACTIONS (8)
  - Hypertension [Unknown]
  - Pain [Not Recovered/Not Resolved]
  - Gait inability [Not Recovered/Not Resolved]
  - Pain in extremity [Not Recovered/Not Resolved]
  - Colitis [Recovered/Resolved]
  - COVID-19 [Recovering/Resolving]
  - Dyspnoea [Not Recovered/Not Resolved]
  - Bone pain [Recovered/Resolved]

NARRATIVE: CASE EVENT DATE: 20210615
